FAERS Safety Report 4779357-8 (Version None)
Quarter: 2005Q3

REPORT INFORMATION
  Report Type: 
  Country: None (occurrence: None)
  Receive Date: 20050914
  Receipt Date: 20050628
  Transmission Date: 20060218
  Serious: Yes (Other)
  Sender: FDA-Public Use
  Company Number: 409343

PATIENT
  Age: 72 Year
  Sex: Female

DRUGS (5)
  1. BONIVA [Suspect]
     Indication: OSTEOPOROSIS
     Dosage: 150  MG 1 PER MONTH ORAL
     Route: 048
     Dates: start: 20050627
  2. LIPITOR [Concomitant]
  3. NEXIUM [Concomitant]
  4. PREVACID [Concomitant]
  5. EVISTA [Concomitant]

REACTIONS (15)
  - ARTHRALGIA [None]
  - BACK PAIN [None]
  - CHEST WALL PAIN [None]
  - CHILLS [None]
  - DIARRHOEA [None]
  - DYSPEPSIA [None]
  - GASTRIC DISORDER [None]
  - HEADACHE [None]
  - MUSCULOSKELETAL PAIN [None]
  - PAIN IN EXTREMITY [None]
  - PHARYNGOLARYNGEAL PAIN [None]
  - PYREXIA [None]
  - REFLUX OESOPHAGITIS [None]
  - THYROID FUNCTION TEST ABNORMAL [None]
  - VAGINAL BURNING SENSATION [None]
